FAERS Safety Report 24032027 (Version 2)
Quarter: 2024Q4

REPORT INFORMATION
  Report Type: Report from Study
  Country: GB (occurrence: GB)
  Receive Date: 20240630
  Receipt Date: 20241107
  Transmission Date: 20250115
  Serious: Yes (Other)
  Sender: SANDOZ
  Company Number: GB-SANDOZ-SDZ2024GB061294

PATIENT
  Sex: Male

DRUGS (1)
  1. OMNITROPE [Suspect]
     Active Substance: SOMATROPIN
     Indication: Hyperpituitarism
     Dosage: 0.7 MG
     Route: 065
     Dates: start: 20240625

REACTIONS (5)
  - Autism spectrum disorder [Unknown]
  - Growth disorder [Unknown]
  - Arthralgia [Unknown]
  - Product use in unapproved indication [Unknown]
  - Device dispensing error [Unknown]
